FAERS Safety Report 7862492-5 (Version None)
Quarter: 2011Q4

REPORT INFORMATION
  Report Type: 
  Country: None (occurrence: None)
  Receive Date: 20111027
  Receipt Date: 20101103
  Transmission Date: 20120403
  Serious: Yes (Other)
  Sender: FDA-Public Use
  Company Number: US-AMGEN-USASP2010003425

PATIENT
  Age: 50 Year
  Sex: Female

DRUGS (2)
  1. ENBREL [Suspect]
     Dosage: UNK
     Dates: start: 20070101
  2. ENBREL [Suspect]
     Indication: RHEUMATOID ARTHRITIS
     Dosage: 25 MG, 2 TIMES/WK
     Dates: start: 20001215, end: 20101021

REACTIONS (7)
  - INFLUENZA LIKE ILLNESS [None]
  - UPPER RESPIRATORY TRACT INFECTION [None]
  - IMPAIRED HEALING [None]
  - SQUAMOUS CELL CARCINOMA OF SKIN [None]
  - HEADACHE [None]
  - INCISION SITE INFECTION [None]
  - COUGH [None]
